FAERS Safety Report 25610560 (Version 2)
Quarter: 2025Q3

REPORT INFORMATION
  Report Type: Spontaneous
  Country: EU (occurrence: EU)
  Receive Date: 20250728
  Receipt Date: 20250805
  Transmission Date: 20251020
  Serious: Yes (Hospitalization, Other)
  Sender: AUROBINDO
  Company Number: EU-RDY-POL/2025/07/010491

PATIENT
  Age: 59 Year
  Sex: Male

DRUGS (7)
  1. LAMOTRIGINE [Suspect]
     Active Substance: LAMOTRIGINE
     Indication: Bipolar I disorder
     Route: 065
  2. LAMOTRIGINE [Suspect]
     Active Substance: LAMOTRIGINE
     Indication: Partial seizures with secondary generalisation
  3. PREGABALIN [Suspect]
     Active Substance: PREGABALIN
     Indication: Bipolar I disorder
     Route: 065
  4. PREGABALIN [Suspect]
     Active Substance: PREGABALIN
     Indication: Partial seizures with secondary generalisation
  5. VALPROATE [Suspect]
     Active Substance: VALPROIC ACID
     Indication: Bipolar I disorder
     Route: 065
  6. VALPROATE [Suspect]
     Active Substance: VALPROIC ACID
     Indication: Partial seizures with secondary generalisation
  7. KETAMINE [Concomitant]
     Active Substance: KETAMINE
     Indication: Bipolar I disorder
     Route: 042

REACTIONS (1)
  - Drug ineffective for unapproved indication [Unknown]
